FAERS Safety Report 23436900 (Version 1)
Quarter: 2024Q1

REPORT INFORMATION
  Report Type: Spontaneous
  Country: CA (occurrence: CA)
  Receive Date: 20240124
  Receipt Date: 20240124
  Transmission Date: 20240410
  Serious: Yes (Hospitalization, Other)
  Sender: FDA-Public Use
  Company Number: CA-SA-2021SA417332

PATIENT
  Age: 28 Year
  Sex: Male

DRUGS (11)
  1. ACETAMINOPHEN [Suspect]
     Active Substance: ACETAMINOPHEN
     Indication: Premedication
     Dosage: DOSE DESCRIPTION : 650 MG, QOD(30 MINS PRE-INFUSION)
     Route: 048
  2. UNISOM SLEEPMELTS [Suspect]
     Active Substance: DIPHENHYDRAMINE HYDROCHLORIDE
     Indication: Premedication
     Dosage: DOSE DESCRIPTION : 50 MG, QOD (30 MINS PRE INFUSION)
     Route: 048
  3. LEFLUNOMIDE [Suspect]
     Active Substance: LEFLUNOMIDE
     Indication: Systemic lupus erythematosus
     Dosage: DOSE DESCRIPTION : UNK
     Route: 065
  4. PREDNISONE [Suspect]
     Active Substance: PREDNISONE
     Indication: Systemic lupus erythematosus
     Dosage: DOSE DESCRIPTION : UNK UNK, QOD
     Route: 065
  5. VANCOMYCIN [Suspect]
     Active Substance: VANCOMYCIN
     Indication: Product used for unknown indication
     Dosage: DOSE DESCRIPTION : UNK
     Route: 065
  6. RITUXIMAB [Suspect]
     Active Substance: RITUXIMAB
     Indication: Systemic lupus erythematosus
     Dosage: DOSE DESCRIPTION : 100 MG (1 AND DAY 15, 0 AND DAY 15)
     Route: 042
     Dates: start: 20211206
  7. RITUXIMAB [Suspect]
     Active Substance: RITUXIMAB
     Dosage: DOSE DESCRIPTION : 1000 MG
     Route: 042
     Dates: start: 20220105
  8. HYDROXYCHLOROQUINE SULFATE [Suspect]
     Active Substance: HYDROXYCHLOROQUINE SULFATE
     Indication: Systemic lupus erythematosus
     Dosage: DOSE DESCRIPTION : UNK UNK, QOD
     Route: 065
  9. METHYLPREDNISOLONE SODIUM SUCCINATE [Suspect]
     Active Substance: METHYLPREDNISOLONE SODIUM SUCCINATE
     Indication: Premedication
     Dosage: DOSE DESCRIPTION : 100 MG, QOD (30 MINS PRE-INFUSION)
     Route: 042
  10. MYCOPHENOLATE SODIUM [Suspect]
     Active Substance: MYCOPHENOLATE SODIUM
     Indication: Systemic lupus erythematosus
     Dosage: DOSE DESCRIPTION : UNK UNK, QOD
     Route: 065
  11. DIPHENHYDRAMINE HYDROCHLORIDE [Concomitant]
     Active Substance: DIPHENHYDRAMINE HYDROCHLORIDE
     Indication: Product used for unknown indication
     Dosage: DOSE DESCRIPTION : 50 MG
     Route: 048

REACTIONS (13)
  - Cough [Recovered/Resolved]
  - Systemic lupus erythematosus [Recovered/Resolved]
  - Vancomycin infusion reaction [Recovered/Resolved]
  - Protein urine [Recovered/Resolved]
  - Double stranded DNA antibody positive [Recovered/Resolved]
  - Haemoglobin decreased [Recovered/Resolved]
  - Headache [Recovered/Resolved]
  - Pyrexia [Recovered/Resolved]
  - Rash [Recovered/Resolved]
  - White blood cell count decreased [Recovered/Resolved]
  - Rash maculo-papular [Recovered/Resolved]
  - Product use in unapproved indication [Unknown]
  - Therapeutic response decreased [Unknown]

NARRATIVE: CASE EVENT DATE: 20220101
